FAERS Safety Report 6381281-4 (Version None)
Quarter: 2009Q3

REPORT INFORMATION
  Report Type: 
  Country: None (occurrence: None)
  Receive Date: 20090923
  Receipt Date: 20090908
  Transmission Date: 20100115
  Serious: Yes (Death)
  Sender: FDA-Public Use
  Company Number: 2009002721

PATIENT
  Age: 63 Year
  Sex: Female

DRUGS (5)
  1. ERLOTINIB HYDROCHLORIDE [Suspect]
     Indication: PANCREATIC CARCINOMA METASTATIC
     Dosage: (100 MG, QD), ORAL
     Route: 048
     Dates: start: 20090709, end: 20090826
  2. GEMCITABINE [Suspect]
     Dosage: (1125 MG, QW), INTRAVENOUS
     Route: 042
  3. ATIVAN [Concomitant]
  4. GLIPIZIDE [Concomitant]
  5. INSULATARD NPH HUMAN [Concomitant]

REACTIONS (6)
  - ATELECTASIS [None]
  - FALL [None]
  - HAEMATOCRIT DECREASED [None]
  - HAEMOGLOBIN DECREASED [None]
  - PLEURAL EFFUSION [None]
  - PNEUMONIA [None]
